FAERS Safety Report 25928389 (Version 4)
Quarter: 2025Q4

REPORT INFORMATION
  Report Type: Report from Study
  Country: BR (occurrence: BR)
  Receive Date: 20251016
  Receipt Date: 20251106
  Transmission Date: 20260117
  Serious: Yes (Other)
  Sender: NOVARTIS
  Company Number: BR-002147023-NVSC2025BR142636

PATIENT
  Sex: Female
  Weight: 68 kg

DRUGS (11)
  1. METFORMIN HYDROCHLORIDE\VILDAGLIPTIN [Suspect]
     Active Substance: METFORMIN HYDROCHLORIDE\VILDAGLIPTIN
     Indication: Glucose tolerance impaired
     Dosage: 2 DOSAGE FORM (TABLETS), QD (IT HAS BEEN ABOUT 22/23 YEARS (3))
     Route: 048
  2. METFORMIN HYDROCHLORIDE\VILDAGLIPTIN [Suspect]
     Active Substance: METFORMIN HYDROCHLORIDE\VILDAGLIPTIN
     Dosage: UNK (START DATE MORE THAN 20 YEARS)
     Route: 065
  3. METFORMIN HYDROCHLORIDE\VILDAGLIPTIN [Suspect]
     Active Substance: METFORMIN HYDROCHLORIDE\VILDAGLIPTIN
     Dosage: UNK, (1 TABLET IN THE MORNING AND ANOTHER AT NIGHT) (25 YEARS AGO)
     Route: 048
  4. TRILEPTAL [Suspect]
     Active Substance: OXCARBAZEPINE
     Indication: Bipolar disorder
     Dosage: 600 MG
     Route: 065
  5. TRILEPTAL [Suspect]
     Active Substance: OXCARBAZEPINE
     Dosage: 300 MG
     Route: 065
  6. TRILEPTAL [Suspect]
     Active Substance: OXCARBAZEPINE
     Dosage: 1800 MG, QD (START DATE: IT HAS BEEN ABOUT 22/23 YEARS (3), END DATE: SINCE 15 YEARS AGO)
     Route: 048
  7. TRILEPTAL [Suspect]
     Active Substance: OXCARBAZEPINE
     Dosage: 1200 MG, QD
     Route: 048
     Dates: start: 2019, end: 2019
  8. TRILEPTAL [Suspect]
     Active Substance: OXCARBAZEPINE
     Dosage: 900 MG, QD
     Route: 065
  9. TRILEPTAL [Suspect]
     Active Substance: OXCARBAZEPINE
     Dosage: 1200 MG, QD (STARTED SINCE 2 YEARS AGO, END DATE: IN USE)
     Route: 048
  10. TRILEPTAL [Suspect]
     Active Substance: OXCARBAZEPINE
     Dosage: UNK, (TAKE 2 TABLETS, 1 OF 600 MG AND 1 OF 300 MG)
     Route: 048
     Dates: start: 2023
  11. LITHIUM [Concomitant]
     Active Substance: LITHIUM
     Indication: Bipolar disorder
     Dosage: UNK, (2 TABLETS OF 300 MG)
     Route: 048
     Dates: start: 2025

REACTIONS (5)
  - Hyponatraemia [Recovered/Resolved]
  - Hyponatraemia [Recovered/Resolved]
  - Dizziness [Recovered/Resolved]
  - Vision blurred [Recovered/Resolved]
  - Off label use [Not Recovered/Not Resolved]

NARRATIVE: CASE EVENT DATE: 20190101
